APPROVED DRUG PRODUCT: TOBRAMYCIN AND DEXAMETHASONE
Active Ingredient: DEXAMETHASONE; TOBRAMYCIN
Strength: 0.1%;0.3%
Dosage Form/Route: SUSPENSION/DROPS;OPHTHALMIC
Application: A212991 | Product #001
Applicant: AMNEAL EU LTD
Approved: Jul 15, 2021 | RLD: No | RS: No | Type: DISCN